FAERS Safety Report 4540355-0 (Version None)
Quarter: 2004Q4

REPORT INFORMATION
  Report Type: 
  Country: None (occurrence: None)
  Receive Date: 20041223
  Receipt Date: 20041215
  Transmission Date: 20050328
  Serious: Yes (Hospitalization)
  Sender: FDA-Public Use
  Company Number: 2004112422

PATIENT
  Age: 93 Year
  Sex: Female

DRUGS (9)
  1. FLUCONAZOLE [Suspect]
     Indication: ILL-DEFINED DISORDER
     Dosage: 50 MG (1 IN 1 D), ORAL
     Route: 048
     Dates: start: 20040925, end: 20040930
  2. FOLIC ACID [Concomitant]
  3. CARBAMAZEPINE [Concomitant]
  4. ACETYLSALICYLIC LYSINE (ACETYLSALICYLIC LYSINE) [Concomitant]
  5. PAROXETINE HCL [Concomitant]
  6. ALENDRONICACID (ALENDRONIC ACID) [Concomitant]
  7. ZOPICLONE (ZOPICLONE) [Concomitant]
  8. FUROSEMIDE [Concomitant]
  9. POTASSIUM CHLORIDE [Concomitant]

REACTIONS (6)
  - ANAEMIA [None]
  - ANOREXIA [None]
  - DEHYDRATION [None]
  - DRUG INTERACTION [None]
  - OVERDOSE [None]
  - THROMBOCYTOPENIA [None]
